FAERS Safety Report 15948095 (Version 1)
Quarter: 2019Q1

REPORT INFORMATION
  Report Type: Spontaneous
  Country: US (occurrence: US)
  Receive Date: 20190211
  Receipt Date: 20190211
  Transmission Date: 20190417
  Serious: No
  Sender: FDA-Public Use
  Company Number: US-GLAXOSMITHKLINE-US2019019220

PATIENT
  Sex: Female

DRUGS (1)
  1. TRELEGY ELLIPTA [Suspect]
     Active Substance: FLUTICASONE FUROATE\UMECLIDINIUM BROMIDE\VILANTEROL TRIFENATATE
     Indication: CHRONIC OBSTRUCTIVE PULMONARY DISEASE
     Dosage: 1 PUFF(S), QD
     Route: 055

REACTIONS (6)
  - Panic attack [Not Recovered/Not Resolved]
  - Condition aggravated [Unknown]
  - Oxygen saturation abnormal [Not Recovered/Not Resolved]
  - Pollakiuria [Not Recovered/Not Resolved]
  - Anxiety [Not Recovered/Not Resolved]
  - Chills [Recovered/Resolved]

NARRATIVE: CASE EVENT DATE: 20190129
